FAERS Safety Report 14777381 (Version 1)
Quarter: 2018Q2

REPORT INFORMATION
  Report Type: Spontaneous
  Country: US (occurrence: US)
  Receive Date: 20180419
  Receipt Date: 20180419
  Transmission Date: 20180711
  Serious: No
  Sender: FDA-Public Use
  Company Number: US-AMGEN-USASP2018051336

PATIENT
  Age: 19 Year
  Sex: Female

DRUGS (1)
  1. ENBREL [Suspect]
     Active Substance: ETANERCEPT
     Indication: MUSCULOSKELETAL DISCOMFORT
     Dosage: 50 MG, UNK
     Route: 065
     Dates: start: 201804

REACTIONS (2)
  - Off label use [Unknown]
  - Injection site erythema [Unknown]

NARRATIVE: CASE EVENT DATE: 201804
